FAERS Safety Report 18770491 (Version 4)
Quarter: 2021Q2

REPORT INFORMATION
  Report Type: Report from Study
  Country: US (occurrence: US)
  Receive Date: 20210121
  Receipt Date: 20210419
  Transmission Date: 20210717
  Serious: Yes (Other)
  Sender: FDA-Public Use
  Company Number: NVSC2021US010071

PATIENT
  Sex: Female

DRUGS (5)
  1. COSENTYX [Suspect]
     Active Substance: SECUKINUMAB
     Dosage: 150 UG, EVERY 4 WEEKS
     Route: 058
  2. HUMIRA [Concomitant]
     Active Substance: ADALIMUMAB
     Indication: PRODUCT USED FOR UNKNOWN INDICATION
     Dosage: UNK
     Route: 065
  3. COSENTYX [Suspect]
     Active Substance: SECUKINUMAB
     Indication: ANKYLOSING SPONDYLITIS
     Dosage: 150 MG, QMO
     Route: 058
  4. HYDROXYCHLOROQUINE [Concomitant]
     Active Substance: HYDROXYCHLOROQUINE
     Indication: PRODUCT USED FOR UNKNOWN INDICATION
     Dosage: UNK
     Route: 065
  5. PREDNISONE. [Concomitant]
     Active Substance: PREDNISONE
     Indication: PRODUCT USED FOR UNKNOWN INDICATION
     Dosage: 2.5 MG, UNKNOWN
     Route: 065

REACTIONS (41)
  - Hyperthyroidism [Not Recovered/Not Resolved]
  - Back pain [Not Recovered/Not Resolved]
  - Abdominal distension [Not Recovered/Not Resolved]
  - Chest discomfort [Not Recovered/Not Resolved]
  - Ear discomfort [Not Recovered/Not Resolved]
  - Sinus headache [Not Recovered/Not Resolved]
  - Dizziness [Unknown]
  - Chest pain [Not Recovered/Not Resolved]
  - Gait disturbance [Unknown]
  - Flatulence [Unknown]
  - Asthenia [Unknown]
  - Dyspnoea [Unknown]
  - Depression [Unknown]
  - Syncope [Unknown]
  - Diarrhoea [Not Recovered/Not Resolved]
  - Gastrointestinal disorder [Unknown]
  - Heart rate decreased [Not Recovered/Not Resolved]
  - Migraine [Not Recovered/Not Resolved]
  - Feeling abnormal [Not Recovered/Not Resolved]
  - Cardiac disorder [Not Recovered/Not Resolved]
  - Gastrointestinal pain [Unknown]
  - Tongue disorder [Unknown]
  - Chronic sinusitis [Unknown]
  - Fatigue [Unknown]
  - Pain [Unknown]
  - Sinus polyp [Unknown]
  - Asthma [Not Recovered/Not Resolved]
  - Rhinorrhoea [Not Recovered/Not Resolved]
  - Vomiting [Not Recovered/Not Resolved]
  - Taste disorder [Not Recovered/Not Resolved]
  - Throat tightness [Unknown]
  - Anxiety [Not Recovered/Not Resolved]
  - Joint swelling [Not Recovered/Not Resolved]
  - Viral infection [Not Recovered/Not Resolved]
  - Insomnia [Unknown]
  - Incorrect dose administered [Unknown]
  - Arthralgia [Not Recovered/Not Resolved]
  - Swelling [Not Recovered/Not Resolved]
  - Crepitations [Not Recovered/Not Resolved]
  - Pain in extremity [Not Recovered/Not Resolved]
  - Impaired healing [Unknown]
